FAERS Safety Report 9286922 (Version 1)
Quarter: 2013Q2

REPORT INFORMATION
  Report Type: Spontaneous
  Country: FR (occurrence: None)
  Receive Date: 20130508
  Receipt Date: 20130508
  Transmission Date: 20140414
  Serious: Yes (Hospitalization)
  Sender: FDA-Public Use
  Company Number: 2013000103

PATIENT
  Age: 75 Year
  Sex: Female

DRUGS (13)
  1. LASILIX [Suspect]
     Indication: PRODUCT USED FOR UNKNOWN INDICATION
     Route: 048
     Dates: start: 2010, end: 20130309
  2. BISOPROLOL (BISOPROLOL) [Concomitant]
  3. FLECAINE (FLECAINIDE ACETATE) [Concomitant]
  4. MOVICOL [Concomitant]
  5. LEXOMIL (BROMAZEPAM) [Concomitant]
  6. PIASCLEDINE (GLYCINE MAX SEED OIL, PERSEA AMERICANA OIL) [Concomitant]
  7. NUTRIVISC (POVIDONE) [Concomitant]
  8. ANTARENE (IBUPROFEN) [Concomitant]
  9. CYCLO (MELIOTUS OFFICINALIS, RUSCUS ACULEATUS) [Concomitant]
  10. ESOMEPRAZOLE (ESOMEPRAZOLE) [Concomitant]
  11. TRIMEBUTINE (TRIMEBUTINE) [Concomitant]
  12. PAROEX (CHLORHEXIDINE) [Concomitant]
  13. ACEON [Suspect]
     Indication: PRODUCT USED FOR UNKNOWN INDICATION
     Route: 048
     Dates: start: 2010, end: 20130309

REACTIONS (5)
  - Dehydration [None]
  - Blood potassium decreased [None]
  - Renal failure acute [None]
  - Blood sodium decreased [None]
  - Diarrhoea [None]
